FAERS Safety Report 7069001-1 (Version None)
Quarter: 2010Q4

REPORT INFORMATION
  Report Type: 
  Country: None (occurrence: None)
  Receive Date: 20101028
  Receipt Date: 20101025
  Transmission Date: 20110411
  Serious: Yes (Hospitalization)
  Sender: FDA-Public Use
  Company Number: FR-PURDUE-GBR-2010-0007259

PATIENT
  Sex: Female

DRUGS (5)
  1. SEVREDOL TABLETS 10 MG [Suspect]
     Indication: PAIN
     Dosage: 10 MG, TID
     Route: 048
     Dates: start: 20100908, end: 20100920
  2. CONTRAMAL [Suspect]
     Indication: SCIATICA
     Dosage: 150 MG, BID
     Route: 048
     Dates: start: 20100826, end: 20100908
  3. SKENAN [Suspect]
     Indication: PRODUCT USED FOR UNKNOWN INDICATION
     Dosage: 10 MG, BID
     Route: 048
     Dates: start: 20100908, end: 20100915
  4. LYRICA [Concomitant]
  5. ACETAMINOPHEN [Concomitant]

REACTIONS (1)
  - TRANSAMINASES INCREASED [None]
